FAERS Safety Report 6911845-8 (Version None)
Quarter: 2010Q3

REPORT INFORMATION
  Report Type: 
  Country: None (occurrence: None)
  Receive Date: 20100806
  Receipt Date: 20070719
  Transmission Date: 20110219
  Serious: No
  Sender: FDA-Public Use
  Company Number: US-PFIZER INC-2007059599

PATIENT
  Sex: Male
  Weight: 70.454 kg

DRUGS (9)
  1. DETROL LA [Suspect]
     Indication: PROSTATIC DISORDER
     Dates: start: 20070711
  2. DETROL LA [Suspect]
     Indication: POLLAKIURIA
  3. METFORMIN HCL [Suspect]
     Indication: DIABETES MELLITUS
  4. UROXATRAL [Suspect]
  5. ASCORBIC ACID [Concomitant]
  6. VITAMIN TAB [Concomitant]
  7. ALL OTHER THERAPEUTIC PRODUCTS [Concomitant]
  8. SAW PALMETTO [Concomitant]
  9. TERAZOSIN HCL [Concomitant]

REACTIONS (3)
  - BLOOD GLUCOSE DECREASED [None]
  - DRUG INEFFECTIVE [None]
  - POLLAKIURIA [None]
